FAERS Safety Report 20722643 (Version 1)
Quarter: 2022Q2

REPORT INFORMATION
  Report Type: Spontaneous
  Country: PT (occurrence: PT)
  Receive Date: 20220419
  Receipt Date: 20220419
  Transmission Date: 20220721
  Serious: Yes (Hospitalization, Other)
  Sender: FDA-Public Use
  Company Number: PT-ORGANON-O2204PRT000612

PATIENT
  Age: 4 Decade
  Sex: Male

DRUGS (2)
  1. ALENDRONIC ACID [Suspect]
     Active Substance: ALENDRONIC ACID
     Indication: Osteoporosis
     Dosage: 70 MILLIGRAM (1 MONTH)
     Route: 048
  2. ALENDRONIC ACID [Suspect]
     Active Substance: ALENDRONIC ACID
     Dosage: UNK
     Route: 042

REACTIONS (8)
  - Oesophagitis [Recovered/Resolved]
  - Wrong technique in product usage process [Unknown]
  - Oesophageal ulcer [Recovered/Resolved]
  - Abdominal pain upper [Unknown]
  - Dysphagia [Unknown]
  - Abdominal tenderness [Unknown]
  - White blood cell count increased [Unknown]
  - C-reactive protein increased [Unknown]
